FAERS Safety Report 7333358-4 (Version None)
Quarter: 2011Q1

REPORT INFORMATION
  Report Type: 
  Country: None (occurrence: None)
  Receive Date: 20110304
  Receipt Date: 20110217
  Transmission Date: 20110831
  Serious: Yes (Hospitalization, Other)
  Sender: FDA-Public Use
  Company Number: JP-CELGENEUS-087-21880-11012826

PATIENT
  Sex: Male

DRUGS (25)
  1. REVLIMID [Suspect]
     Indication: MULTIPLE MYELOMA
     Dosage: 25 MILLIGRAM
     Route: 048
     Dates: start: 20101110, end: 20101229
  2. LENADEX [Suspect]
     Dosage: 40 MILLIGRAM
     Route: 048
     Dates: start: 20101208, end: 20101227
  3. ACTOS [Concomitant]
     Dosage: 15 MILLIGRAM
     Route: 048
     Dates: start: 20101208
  4. CELECOX [Concomitant]
     Dosage: 100 MILLIGRAM
     Route: 065
  5. REVLIMID [Suspect]
     Dosage: 25 MILLIGRAM
     Route: 048
     Dates: start: 20101208, end: 20101228
  6. ASPIRIN [Concomitant]
     Indication: PROPHYLAXIS
     Dosage: 100 MILLIGRAM
     Route: 048
     Dates: start: 20101110
  7. ACTOS [Concomitant]
     Indication: DIABETES MELLITUS
     Dosage: 15 MILLIGRAM
     Route: 048
     Dates: start: 20101110
  8. CELECOX [Concomitant]
     Dosage: 200 MILLIGRAM
     Route: 048
     Dates: start: 20101208
  9. BONALON [Concomitant]
     Dosage: 35 MILLIGRAM
     Route: 065
  10. LENADEX [Suspect]
     Indication: MULTIPLE MYELOMA
     Dosage: 40 MILLIGRAM
     Route: 048
     Dates: start: 20101110, end: 20101207
  11. SEIBULE [Concomitant]
     Indication: DIABETES MELLITUS
     Dosage: 150 MILLIGRAM
     Route: 048
     Dates: start: 20101110
  12. NESINA [Concomitant]
     Dosage: 12.5 MILLIGRAM
     Route: 048
     Dates: start: 20101208
  13. MARZULENE-S [Concomitant]
     Route: 065
  14. ADJUST-A [Concomitant]
     Dosage: 40 MILLIGRAM
     Route: 065
  15. PARIET [Concomitant]
     Dosage: 10 MILLIGRAM
     Route: 048
     Dates: start: 20101208
  16. SELBEX [Concomitant]
     Indication: PROPHYLAXIS
     Dosage: 50 MILLIGRAM
     Route: 048
     Dates: start: 20101110
  17. LENDORMIN [Concomitant]
     Dosage: .25 MILLIGRAM
     Route: 048
  18. PARIET [Concomitant]
     Indication: PROPHYLAXIS
     Dosage: 10 MILLIGRAM
     Route: 048
     Dates: start: 20101110
  19. SELBEX [Concomitant]
     Dosage: 150 MILLIGRAM
     Route: 048
     Dates: start: 20101208
  20. CELECOX [Concomitant]
     Indication: MULTIPLE MYELOMA
     Dosage: 200 MILLIGRAM
     Route: 048
     Dates: start: 20101110
  21. MAGMITT [Concomitant]
     Dosage: 500 MILLIGRAM
     Route: 048
  22. REVLIMID [Suspect]
     Dosage: 20 MILLIGRAM
     Route: 048
     Dates: start: 20110119, end: 20110126
  23. LENADEX [Suspect]
     Dosage: 40 MILLIGRAM
     Route: 048
     Dates: start: 20110119, end: 20110127
  24. SEIBULE [Concomitant]
     Dosage: 150 MILLIGRAM
     Route: 048
     Dates: start: 20101208
  25. NESINA [Concomitant]
     Indication: DIABETES MELLITUS
     Dosage: 12.5 MILLIGRAM
     Route: 048
     Dates: start: 20101110

REACTIONS (3)
  - C-REACTIVE PROTEIN INCREASED [None]
  - WHITE BLOOD CELL COUNT DECREASED [None]
  - DIARRHOEA [None]
